FAERS Safety Report 6660131-2 (Version None)
Quarter: 2010Q1

REPORT INFORMATION
  Report Type: 
  Country: None (occurrence: None)
  Receive Date: 20100331
  Receipt Date: 20100319
  Transmission Date: 20100710
  Serious: No
  Sender: FDA-Public Use
  Company Number: 2009BI008678

PATIENT
  Sex: Female

DRUGS (1)
  1. TYSABRI [Suspect]
     Indication: MULTIPLE SCLEROSIS
     Route: 042
     Dates: start: 20090106

REACTIONS (6)
  - DIARRHOEA [None]
  - DYSPNOEA [None]
  - FATIGUE [None]
  - HYPERSOMNIA [None]
  - INSOMNIA [None]
  - NASOPHARYNGITIS [None]
